FAERS Safety Report 23183747 (Version 4)
Quarter: 2024Q1

REPORT INFORMATION
  Report Type: Spontaneous
  Country: JP (occurrence: JP)
  Receive Date: 20231114
  Receipt Date: 20240109
  Transmission Date: 20240410
  Serious: Yes (Other)
  Sender: FDA-Public Use
  Company Number: JP-Vifor (International) Inc.-VIT-2023-08984

PATIENT

DRUGS (5)
  1. TAVNEOS [Suspect]
     Active Substance: AVACOPAN
     Indication: Anti-neutrophil cytoplasmic antibody positive vasculitis
     Dosage: UNK
     Route: 048
  2. RITUXIMAB [Concomitant]
     Active Substance: RITUXIMAB
     Dosage: UNK
  3. PREDNISOLONE [Concomitant]
     Active Substance: PREDNISOLONE
     Dosage: 20 MILLIGRAM, QD
  4. PREDNISOLONE [Concomitant]
     Active Substance: PREDNISOLONE
     Dosage: UNK
  5. CYCLOPHOSPHAMIDE [Concomitant]
     Active Substance: CYCLOPHOSPHAMIDE
     Dosage: UNK

REACTIONS (11)
  - Cholelithiasis [Unknown]
  - Cholecystitis [Unknown]
  - Deep vein thrombosis [Unknown]
  - Renal impairment [Unknown]
  - Drug-induced liver injury [Recovering/Resolving]
  - Pneumonia [Recovering/Resolving]
  - Pyrexia [Unknown]
  - Sinusitis [Recovering/Resolving]
  - Hyperlipidaemia [Unknown]
  - Hypertension [Unknown]
  - Nausea [Unknown]
